FAERS Safety Report 8065335-2 (Version None)
Quarter: 2012Q1

REPORT INFORMATION
  Report Type: 
  Country: None (occurrence: None)
  Receive Date: 20120124
  Receipt Date: 20120116
  Transmission Date: 20120608
  Serious: Yes (Hospitalization)
  Sender: FDA-Public Use
  Company Number: JP-JNJFOC-20120109292

PATIENT
  Age: 80 Year
  Sex: Male

DRUGS (1)
  1. LEVOFLOXACIN [Suspect]
     Indication: PNEUMONIA MYCOPLASMAL
     Route: 042
     Dates: start: 20111222, end: 20111225

REACTIONS (2)
  - HYPONATRAEMIA [None]
  - DECREASED APPETITE [None]
